FAERS Safety Report 6302061-1 (Version None)
Quarter: 2009Q3

REPORT INFORMATION
  Report Type: 
  Country: None (occurrence: None)
  Receive Date: 20090807
  Receipt Date: 20090728
  Transmission Date: 20100115
  Serious: Yes (Hospitalization)
  Sender: FDA-Public Use
  Company Number: US-ABBOTT-09P-163-0587929-00

PATIENT
  Sex: Male
  Weight: 66.738 kg

DRUGS (8)
  1. HUMIRA [Suspect]
     Indication: CROHN'S DISEASE
     Dates: start: 20090301, end: 20090729
  2. CORTICOSTEROIDS [Concomitant]
     Indication: DRUG USE FOR UNKNOWN INDICATION
  3. LACTULOSE [Concomitant]
     Indication: DRUG USE FOR UNKNOWN INDICATION
  4. METOPROLOL TARTRATE [Concomitant]
     Indication: DRUG USE FOR UNKNOWN INDICATION
  5. ISORBID [Concomitant]
     Indication: DRUG USE FOR UNKNOWN INDICATION
  6. ALTACE [Concomitant]
     Indication: DRUG USE FOR UNKNOWN INDICATION
  7. ENTOCORT EC [Concomitant]
     Indication: CROHN'S DISEASE
  8. PENTASA [Concomitant]
     Indication: CROHN'S DISEASE

REACTIONS (2)
  - INFLUENZA [None]
  - RESPIRATORY FAILURE [None]
